FAERS Safety Report 4416606-X (Version None)
Quarter: 2004Q2

REPORT INFORMATION
  Report Type: 
  Country: None (occurrence: None)
  Receive Date: 20040630
  Receipt Date: 20040514
  Transmission Date: 20050107
  Serious: Yes (Hospitalization)
  Sender: FDA-Public Use
  Company Number: 04P-153-0260950-00

PATIENT
  Age: 77 Year
  Sex: Female

DRUGS (20)
  1. HUMIRA [Suspect]
     Indication: RHEUMATOID ARTHRITIS
     Dosage: 40 MG , 1 IN 2 WK, SUBCUTANEOUS
     Route: 058
     Dates: start: 20030601, end: 20030701
  2. HUMIRA [Suspect]
     Indication: RHEUMATOID ARTHRITIS
     Dosage: 40 MG , 1 IN 2 WK, SUBCUTANEOUS
     Route: 058
     Dates: start: 20030701, end: 20031101
  3. HUMIRA [Suspect]
     Indication: RHEUMATOID ARTHRITIS
     Dosage: 40 MG , 1 IN 2 WK, SUBCUTANEOUS
     Route: 058
     Dates: start: 20031201, end: 20040412
  4. LISINOPRIL [Concomitant]
  5. BUMETANIDE [Concomitant]
  6. POTASSIUM CHLORIDE [Concomitant]
  7. MAGNESIUM [Concomitant]
  8. CONJUGATED ESTROGEN [Concomitant]
  9. LEVOTHYROXINE SODIUM [Concomitant]
  10. ASPIRIN [Concomitant]
  11. ATORVASTATIN [Concomitant]
  12. DIGOXIN [Concomitant]
  13. POLYSACCHARIDE-IRON COMPLEX [Concomitant]
  14. PREDNISONE [Concomitant]
  15. LEKOVIT CA [Concomitant]
  16. MULTIVITAMIN [Concomitant]
  17. MISOPROSTOL [Concomitant]
  18. CARVEDILOL [Concomitant]
  19. ALENDRONATE SODIUM [Concomitant]
  20. SALBUTAMOL SULFATE [Concomitant]

REACTIONS (7)
  - ABASIA [None]
  - ASTHENIA [None]
  - COUGH [None]
  - MYOCARDIAL INFARCTION [None]
  - PNEUMONIA [None]
  - PYREXIA [None]
  - TOOTH ABSCESS [None]
